FAERS Safety Report 25034692 (Version 2)
Quarter: 2025Q1

REPORT INFORMATION
  Report Type: Spontaneous
  Country: US (occurrence: US)
  Receive Date: 20250304
  Receipt Date: 20250323
  Transmission Date: 20250408
  Serious: No
  Sender: LUPIN
  Company Number: US-LUPIN PHARMACEUTICALS INC.-2025-01668

PATIENT

DRUGS (1)
  1. ARFORMOTEROL TARTRATE [Suspect]
     Active Substance: ARFORMOTEROL TARTRATE
     Indication: Chronic obstructive pulmonary disease

REACTIONS (2)
  - Asthenia [Unknown]
  - Fatigue [Unknown]
